FAERS Safety Report 7148790-1 (Version None)
Quarter: 2010Q4

REPORT INFORMATION
  Report Type: 
  Country: None (occurrence: None)
  Receive Date: 20101209
  Receipt Date: 20101128
  Transmission Date: 20110411
  Serious: Yes (Other)
  Sender: FDA-Public Use
  Company Number: PHHY2010MX80956

PATIENT
  Sex: Male

DRUGS (4)
  1. EXFORGE [Suspect]
     Indication: HYPERTENSION
     Dosage: 1 DF, DAILY
     Route: 048
     Dates: start: 20100901, end: 20101101
  2. DIOVAN HCT [Suspect]
  3. DINVIT [Concomitant]
     Dosage: UNK
  4. ESTIGLOS [Concomitant]
     Dosage: UNK

REACTIONS (1)
  - COMA [None]
